FAERS Safety Report 7878724-3 (Version None)
Quarter: 2011Q4

REPORT INFORMATION
  Report Type: 
  Country: None (occurrence: None)
  Receive Date: 20111028
  Receipt Date: 20111012
  Transmission Date: 20120403
  Serious: Yes (Other)
  Sender: FDA-Public Use
  Company Number: 1000024865

PATIENT
  Age: 66 Year
  Sex: Male
  Weight: 97 kg

DRUGS (5)
  1. APSOMOL N (SALBUTAMOL SULFATE) (SALBUTAMOL SULFATE) [Concomitant]
  2. OXYGEN (OXYGEN) (OXYGEN) [Concomitant]
  3. SPIRIVA (TIOTROPIUM BROMIDE) (TIOTROPIUM BROMIDE) [Concomitant]
  4. ROFLUMILAST (ROFLUMILAST) (TABLETS) [Suspect]
     Indication: CHRONIC OBSTRUCTIVE PULMONARY DISEASE
     Dosage: 500 MCG (500 MCG, 1 IN 1 D), ORAL
     Route: 048
     Dates: start: 20110225, end: 20110428
  5. OMBES 150 (ALL OTHER THERAPEUTIC PRODUCTS) (ALL OTHER THERAPEUTIC PROD [Concomitant]

REACTIONS (4)
  - WOUND [None]
  - BLISTER [None]
  - SKIN ULCER [None]
  - GASTRITIS [None]
